FAERS Safety Report 20523165 (Version 3)
Quarter: 2022Q1

REPORT INFORMATION
  Report Type: Spontaneous
  Country: IT (occurrence: IT)
  Receive Date: 20220227
  Receipt Date: 20220311
  Transmission Date: 20220423
  Serious: Yes (Hospitalization)
  Sender: FDA-Public Use
  Company Number: None

PATIENT
  Age: 76 Year
  Weight: 70 kg

DRUGS (1)
  1. PRIVIGEN [Suspect]
     Active Substance: HUMAN IMMUNOGLOBULIN G
     Indication: Selective IgG subclass deficiency
     Dosage: 5 GRAM, PRN
     Route: 042
     Dates: start: 20220208, end: 20220208

REACTIONS (6)
  - Anaphylactic reaction [Recovered/Resolved]
  - Chills [Recovered/Resolved]
  - Bronchospasm [Recovered/Resolved]
  - Cyanosis [Recovered/Resolved]
  - Lactic acidosis [Recovered/Resolved]
  - Metabolic acidosis [Recovered/Resolved]

NARRATIVE: CASE EVENT DATE: 20220208
